FAERS Safety Report 8230916-X (Version None)
Quarter: 2012Q1

REPORT INFORMATION
  Report Type: 
  Country: None (occurrence: None)
  Receive Date: 20120323
  Receipt Date: 20120320
  Transmission Date: 20120608
  Serious: Yes (Death)
  Sender: FDA-Public Use
  Company Number: US-PFIZER INC-2012072055

PATIENT
  Age: 47 Year
  Sex: Female

DRUGS (1)
  1. XALKORI [Suspect]
     Indication: LUNG NEOPLASM MALIGNANT
     Dosage: 25 MG, 2X/DAY
     Route: 048
     Dates: start: 20111027, end: 20120225

REACTIONS (1)
  - DEATH [None]
